FAERS Safety Report 18010570 (Version 2)
Quarter: 2020Q4

REPORT INFORMATION
  Report Type: Report from Study
  Country: GB (occurrence: GB)
  Receive Date: 20200710
  Receipt Date: 20201016
  Transmission Date: 20210113
  Serious: Yes (Life-Threatening, Disabling)
  Sender: FDA-Public Use
  Company Number: GB-BAUSCH-BL-2020-019023

PATIENT
  Age: 52 Year
  Sex: Female

DRUGS (2)
  1. KYNTHEUM [Suspect]
     Active Substance: BRODALUMAB
     Indication: PSORIASIS
     Dosage: 210MG WEEK 0, 1, 2
     Route: 058
     Dates: start: 20200604, end: 2020
  2. KYNTHEUM [Suspect]
     Active Substance: BRODALUMAB
     Dosage: EVERY TWO WEEKS
     Route: 058
     Dates: start: 2020, end: 20200714

REACTIONS (8)
  - Chest pain [Not Recovered/Not Resolved]
  - Immobile [Not Recovered/Not Resolved]
  - Fibromyalgia [Not Recovered/Not Resolved]
  - Malaise [Not Recovered/Not Resolved]
  - Blister [Not Recovered/Not Resolved]
  - Asthenia [Not Recovered/Not Resolved]
  - Skin wound [Not Recovered/Not Resolved]
  - Blister rupture [Not Recovered/Not Resolved]
